FAERS Safety Report 4317431-0 (Version None)
Quarter: 2004Q1

REPORT INFORMATION
  Report Type: 
  Country: None (occurrence: None)
  Receive Date: 20040312
  Receipt Date: 20040304
  Transmission Date: 20041129
  Serious: Yes (Life-Threatening, Hospitalization)
  Sender: FDA-Public Use
  Company Number: 2003AP03485

PATIENT
  Age: 52 Year
  Sex: Female

DRUGS (1)
  1. IRESSA [Suspect]
     Indication: LUNG ADENOCARCINOMA STAGE IV
     Dosage: 250 MG DAILY PO
     Route: 048
     Dates: start: 20030908, end: 20030912

REACTIONS (1)
  - INTERSTITIAL LUNG DISEASE [None]
